FAERS Safety Report 13746947 (Version 1)
Quarter: 2017Q3

REPORT INFORMATION
  Report Type: Spontaneous
  Country: US (occurrence: US)
  Receive Date: 20170712
  Receipt Date: 20170712
  Transmission Date: 20171127
  Serious: Yes (Disabling, Other)
  Sender: FDA-Public Use
  Company Number: GXBR2017US002179

PATIENT
  Sex: Female

DRUGS (1)
  1. CEFDINIR. [Suspect]
     Active Substance: CEFDINIR
     Indication: BRONCHITIS
     Dosage: 300 MG, BID
     Route: 048
     Dates: start: 20170130, end: 20170208

REACTIONS (9)
  - Pain in extremity [Unknown]
  - Pruritus [Unknown]
  - Blood cholesterol increased [Unknown]
  - Rash [Unknown]
  - Skin burning sensation [Unknown]
  - Skin discomfort [Unknown]
  - Psoriasis [Recovered/Resolved]
  - Condition aggravated [Recovered/Resolved]
  - Gait inability [Unknown]

NARRATIVE: CASE EVENT DATE: 20170207
